FAERS Safety Report 7071680-X (Version None)
Quarter: 2010Q4

REPORT INFORMATION
  Report Type: 
  Country: None (occurrence: None)
  Receive Date: 20101029
  Receipt Date: 20091007
  Transmission Date: 20110411
  Serious: No
  Sender: FDA-Public Use
  Company Number: A0810743A

PATIENT
  Age: 74 Year
  Sex: Female

DRUGS (4)
  1. ADVAIR DISKUS 100/50 [Suspect]
     Route: 055
     Dates: start: 20090915
  2. SEREVENT [Suspect]
     Indication: CHRONIC OBSTRUCTIVE PULMONARY DISEASE
     Route: 055
     Dates: start: 19970101, end: 20090801
  3. SYNTHROID [Concomitant]
  4. LORAZEPAM [Concomitant]

REACTIONS (4)
  - DRUG INEFFECTIVE [None]
  - GAIT DISTURBANCE [None]
  - MUSCULAR WEAKNESS [None]
  - PARAESTHESIA [None]
